FAERS Safety Report 9859997 (Version 1)
Quarter: 2014Q1

REPORT INFORMATION
  Report Type: Spontaneous
  Country: AU (occurrence: AU)
  Receive Date: 20140131
  Receipt Date: 20140131
  Transmission Date: 20141002
  Serious: Yes (Hospitalization)
  Sender: FDA-Public Use
  Company Number: AU-ABBVIE-14P-008-1196770-00

PATIENT
  Sex: Female

DRUGS (3)
  1. TARKA ER [Suspect]
     Indication: BLOOD PRESSURE ABNORMAL
     Dosage: 2 MG/180 MG
  2. TARKA ER [Suspect]
     Dosage: 2 MG/180 MG
  3. OTHER UNSPECIFIED MEDICATIONS [Concomitant]
     Indication: PRODUCT USED FOR UNKNOWN INDICATION

REACTIONS (6)
  - Viral infection [Unknown]
  - Malaise [Unknown]
  - Vomiting [Unknown]
  - Syncope [Unknown]
  - Drug dose omission [Unknown]
  - Inappropriate schedule of drug administration [Unknown]
